FAERS Safety Report 15068483 (Version 3)
Quarter: 2018Q3

REPORT INFORMATION
  Report Type: Spontaneous
  Country: PL (occurrence: PL)
  Receive Date: 20180626
  Receipt Date: 20180717
  Transmission Date: 20181010
  Serious: Yes (Hospitalization, Other)
  Sender: FDA-Public Use
  Company Number: PL-MYLANLABS-2018M1044350

PATIENT
  Age: 17 Year
  Sex: Female

DRUGS (3)
  1. DICLOFENAC [Suspect]
     Active Substance: DICLOFENAC
     Indication: BACK PAIN
     Dosage: 50 MG, UNK(Q.D. ?B.I.D.)
  2. PARACETAMOL [Suspect]
     Active Substance: ACETAMINOPHEN
     Indication: BACK PAIN
     Dosage: 1500 MG, QD
     Route: 048
  3. KETOPROFEN. [Suspect]
     Active Substance: KETOPROFEN
     Indication: BACK PAIN
     Dosage: 200 MG, QD
     Route: 065

REACTIONS (2)
  - Staphylococcal sepsis [Recovering/Resolving]
  - Acute kidney injury [Recovered/Resolved]
